FAERS Safety Report 7661782-9 (Version None)
Quarter: 2011Q3

REPORT INFORMATION
  Report Type: 
  Country: None (occurrence: None)
  Receive Date: 20110805
  Receipt Date: 20110802
  Transmission Date: 20111222
  Serious: Yes (Death, Hospitalization, Other)
  Sender: FDA-Public Use
  Company Number: US-CELGENEUS-163-21880-11022639

PATIENT
  Sex: Female

DRUGS (7)
  1. ASPIRIN [Concomitant]
     Route: 065
  2. REVLIMID [Suspect]
     Indication: MULTIPLE MYELOMA
     Dosage: 10 MILLIGRAM
     Route: 048
     Dates: start: 20090315, end: 20090101
  3. REVLIMID [Suspect]
     Dosage: 10 MILLIGRAM
     Route: 048
     Dates: start: 20110215, end: 20110224
  4. REVLIMID [Suspect]
     Dosage: 5-10MG
     Route: 048
     Dates: start: 20090401, end: 20090101
  5. REVLIMID [Suspect]
     Dosage: 25 MILLIGRAM
     Route: 048
     Dates: start: 20100901
  6. REVLIMID [Suspect]
     Dosage: 5 MILLIGRAM
     Route: 048
     Dates: start: 20090501
  7. DEXAMETHASONE [Concomitant]
     Route: 065

REACTIONS (8)
  - MULTIPLE MYELOMA [None]
  - PNEUMONIA [None]
  - RENAL IMPAIRMENT [None]
  - WHITE BLOOD CELL COUNT DECREASED [None]
  - THROMBOCYTOPENIA [None]
  - MEDICATION ERROR [None]
  - NEUTROPHIL COUNT DECREASED [None]
  - EMOTIONAL DISORDER [None]
